FAERS Safety Report 5293533-X (Version None)
Quarter: 2007Q2

REPORT INFORMATION
  Report Type: 
  Country: None (occurrence: None)
  Receive Date: 20070411
  Receipt Date: 20070406
  Transmission Date: 20071010
  Serious: Yes (Hospitalization)
  Sender: FDA-Public Use
  Company Number: B07000034

PATIENT
  Age: 57 Year
  Sex: Male

DRUGS (2)
  1. AMOXICILLIN + CLAVULANATE POTASSIUM [Suspect]
     Dosage: 500MG SINGLE DOSE
     Route: 048
     Dates: start: 20061012, end: 20061012
  2. RHINADVIL [Concomitant]
     Route: 065
     Dates: start: 20061012, end: 20061012

REACTIONS (4)
  - COUGH [None]
  - DYSPNOEA [None]
  - ERYTHEMA [None]
  - URTICARIA [None]
